FAERS Safety Report 5903700-7 (Version None)
Quarter: 2008Q3

REPORT INFORMATION
  Report Type: 
  Country: None (occurrence: None)
  Receive Date: 20080930
  Receipt Date: 20080903
  Transmission Date: 20090109
  Serious: Yes (Death, Other)
  Sender: FDA-Public Use
  Company Number: JP-ABBOTT-08P-087-0444562-00

PATIENT
  Sex: Male

DRUGS (5)
  1. LEUPROLIDE ACETATE [Suspect]
     Indication: PROSTATE CANCER STAGE IV
     Route: 058
     Dates: start: 20070118, end: 20070731
  2. FLUTAMIDE [Concomitant]
     Indication: PROSTATE CANCER STAGE IV
     Route: 048
     Dates: start: 20070118, end: 20070215
  3. ESTRAMUSTINE PHOSPHATE SODIUM [Concomitant]
     Indication: PROSTATE CANCER STAGE IV
     Route: 048
     Dates: start: 20070127, end: 20070528
  4. DEXAMETHASONE [Concomitant]
     Indication: PROSTATE CANCER STAGE IV
     Route: 048
     Dates: start: 20070518, end: 20070928
  5. DOCETAXEL [Concomitant]
     Indication: PROSTATE CANCER STAGE IV
     Route: 042
     Dates: start: 20070327, end: 20070528

REACTIONS (8)
  - BLOOD PRESSURE DECREASED [None]
  - LUNG NEOPLASM MALIGNANT [None]
  - LYMPHADENOPATHY [None]
  - METASTATIC PAIN [None]
  - PROSTATE CANCER [None]
  - PROSTATE CANCER RECURRENT [None]
  - PROSTATIC SPECIFIC ANTIGEN INCREASED [None]
  - RENAL FAILURE ACUTE [None]
